FAERS Safety Report 14061580 (Version 3)
Quarter: 2021Q1

REPORT INFORMATION
  Report Type: Spontaneous
  Country: US (occurrence: US)
  Receive Date: 20171009
  Receipt Date: 20210325
  Transmission Date: 20210419
  Serious: Yes (Life-Threatening, Hospitalization, Other)
  Sender: FDA-Public Use
  Company Number: US-AUROBINDO-AUR-APL-2017-41422

PATIENT
  Age: 40 Year
  Sex: Female

DRUGS (4)
  1. CIMETIDINE [Interacting]
     Active Substance: CIMETIDINE
     Indication: EUPHORIC MOOD
     Dosage: UNK
     Route: 065
  2. LOPERAMIDE [Suspect]
     Active Substance: LOPERAMIDE
     Indication: PRODUCT USED FOR UNKNOWN INDICATION
     Dosage: CHRONIC ABUSE OF HIGH DOSE
     Route: 065
  3. LOPERAMIDE [Interacting]
     Active Substance: LOPERAMIDE
     Dosage: TEN EMPTY BOTTLES (EACH BOTTLE OF LOPERAMIDE ORIGINALLY CONTAINED BETWEEN 96 AND 200 2?MG TABLETS...
     Route: 048
  4. CIMETIDINE [Interacting]
     Active Substance: CIMETIDINE
     Dosage: ONE EMPTY BOTTLE
     Route: 048

REACTIONS (14)
  - Mental impairment [Unknown]
  - Syncope [Recovering/Resolving]
  - Palpitations [Unknown]
  - Toxicity to various agents [Unknown]
  - Ventricular tachycardia [Recovered/Resolved]
  - Anxiety [Unknown]
  - Drug abuse [Unknown]
  - Cardiac arrest [Recovered/Resolved]
  - Electrocardiogram QT prolonged [Recovered/Resolved]
  - Torsade de pointes [Recovered/Resolved]
  - Drug interaction [Unknown]
  - Dyspnoea [Unknown]
  - Intentional product misuse [Unknown]
  - Urinary incontinence [Unknown]
